FAERS Safety Report 12573474 (Version 1)
Quarter: 2016Q3

REPORT INFORMATION
  Report Type: Spontaneous
  Country: US (occurrence: None)
  Receive Date: 20160719
  Receipt Date: 20160719
  Transmission Date: 20161109
  Serious: No
  Sender: FDA-Public Use
  Company Number: None

PATIENT
  Age: 63 Year
  Sex: Female
  Weight: 68.04 kg

DRUGS (9)
  1. CRESTOR [Suspect]
     Active Substance: ROSUVASTATIN CALCIUM
     Indication: BLOOD CHOLESTEROL INCREASED
     Dosage: 1 PILL PER DAY ONCE PER DAY MOUTH BEDTIME
     Route: 048
     Dates: start: 20151226, end: 20160221
  2. GABAPENTIN. [Concomitant]
     Active Substance: GABAPENTIN
  3. VITAMIN C [Concomitant]
     Active Substance: ASCORBIC ACID
  4. COENZYME Q10 [Concomitant]
     Active Substance: UBIDECARENONE
  5. ALENDRONATE SODIUM. [Concomitant]
     Active Substance: ALENDRONATE SODIUM
  6. CALCIUM CITRATE [Concomitant]
     Active Substance: CALCIUM CITRATE
  7. VITAMIN D3 [Concomitant]
     Active Substance: CHOLECALCIFEROL
  8. OMEPRAZOLE DR [Concomitant]
     Active Substance: OMEPRAZOLE
  9. VITAMIN B12 [Concomitant]
     Active Substance: CYANOCOBALAMIN

REACTIONS (10)
  - Pain in extremity [None]
  - Discomfort [None]
  - Muscle spasms [None]
  - Insomnia [None]
  - Pain [None]
  - Gait disturbance [None]
  - Exercise tolerance decreased [None]
  - Arthralgia [None]
  - Asthenia [None]
  - Fatigue [None]

NARRATIVE: CASE EVENT DATE: 20160404
